FAERS Safety Report 25500728 (Version 2)
Quarter: 2025Q3

REPORT INFORMATION
  Report Type: Spontaneous
  Country: AU (occurrence: AU)
  Receive Date: 20250701
  Receipt Date: 20250707
  Transmission Date: 20251021
  Serious: Yes (Life-Threatening, Hospitalization, Other)
  Sender: PFIZER
  Company Number: AU-PFIZER INC-PV202500077246

PATIENT
  Age: 17 Year
  Sex: Female

DRUGS (9)
  1. VINCRISTINE SULFATE [Suspect]
     Active Substance: VINCRISTINE SULFATE
     Indication: Astrocytoma
     Dosage: COG A9952 REGIMEN A PROTOCOL, COMPLETING TREATMENT AT AGE 5
  2. VINCRISTINE SULFATE [Suspect]
     Active Substance: VINCRISTINE SULFATE
     Indication: Disease progression
  3. CARBOPLATIN [Suspect]
     Active Substance: CARBOPLATIN
     Indication: Astrocytoma
     Dosage: CUMULATIVELY RECEIVING APPROXIMATELY 7 G/M2
  4. THIOGUANINE [Suspect]
     Active Substance: THIOGUANINE
     Indication: Astrocytoma
  5. THIOGUANINE [Suspect]
     Active Substance: THIOGUANINE
     Indication: Disease progression
  6. PROCARBAZINE [Suspect]
     Active Substance: PROCARBAZINE
     Indication: Astrocytoma
  7. PROCARBAZINE [Suspect]
     Active Substance: PROCARBAZINE
     Indication: Disease progression
  8. LOMUSTINE [Suspect]
     Active Substance: LOMUSTINE
     Indication: Astrocytoma
  9. LOMUSTINE [Suspect]
     Active Substance: LOMUSTINE
     Indication: Disease progression

REACTIONS (2)
  - Myelodysplastic syndrome [Recovered/Resolved]
  - Second primary malignancy [Recovered/Resolved]

NARRATIVE: CASE EVENT DATE: 20230301
